FAERS Safety Report 8008231-9 (Version None)
Quarter: 2011Q4

REPORT INFORMATION
  Report Type: 
  Country: None (occurrence: None)
  Receive Date: 20111227
  Receipt Date: 20111221
  Transmission Date: 20120403
  Serious: Yes (Hospitalization)
  Sender: FDA-Public Use
  Company Number: US-VERTEX PHARMACEUTICALS INC.-AE-2011-005478

PATIENT
  Sex: Male
  Weight: 90.9 kg

DRUGS (10)
  1. IBUPROFEN [Concomitant]
  2. ALDACTONE [Concomitant]
  3. PROTONIX [Concomitant]
  4. PEG-INTRON [Concomitant]
     Indication: HEPATITIS C
     Route: 058
     Dates: start: 20111107
  5. LANTUS [Concomitant]
  6. METFORMIN [Concomitant]
  7. PROMETHAZINE [Concomitant]
  8. INCIVEK [Suspect]
     Indication: HEPATITIS C
     Route: 048
     Dates: start: 20111107
  9. REBETOL [Concomitant]
     Indication: HEPATITIS C
     Route: 048
     Dates: start: 20111107
  10. COZAAR [Concomitant]

REACTIONS (4)
  - GASTRITIS [None]
  - RASH PRURITIC [None]
  - DIVERTICULITIS [None]
  - INAPPROPRIATE SCHEDULE OF DRUG ADMINISTRATION [None]
